FAERS Safety Report 10305737 (Version 1)
Quarter: 2014Q3

REPORT INFORMATION
  Report Type: Spontaneous
  Country: US (occurrence: US)
  Receive Date: 20140715
  Receipt Date: 20140715
  Transmission Date: 20150326
  Serious: Yes (Other)
  Sender: FDA-Public Use
  Company Number: US-MERCK-1407USA006494

PATIENT
  Age: 56 Year
  Sex: Female
  Weight: 140.59 kg

DRUGS (1)
  1. JANUVIA [Suspect]
     Active Substance: SITAGLIPTIN PHOSPHATE
     Indication: DIABETES MELLITUS
     Dosage: 100 MG, DAILY
     Route: 048
     Dates: start: 20121201, end: 20130117

REACTIONS (5)
  - Arthralgia [Recovering/Resolving]
  - Mobility decreased [Recovered/Resolved]
  - Pain in extremity [Recovering/Resolving]
  - Joint stiffness [Recovered/Resolved]
  - Musculoskeletal stiffness [Recovering/Resolving]

NARRATIVE: CASE EVENT DATE: 20121230
